FAERS Safety Report 7699323-2 (Version None)
Quarter: 2011Q3

REPORT INFORMATION
  Report Type: 
  Country: None (occurrence: None)
  Receive Date: 20110819
  Receipt Date: 20110804
  Transmission Date: 20111222
  Serious: Yes (Hospitalization, Other)
  Sender: FDA-Public Use
  Company Number: US-BAYER-2011-028269

PATIENT
  Age: 31 Year
  Sex: Female
  Weight: 59.864 kg

DRUGS (9)
  1. YASMIN [Suspect]
     Dosage: UNK
     Dates: start: 20050901, end: 20070112
  2. ZITHROMAX [Concomitant]
  3. SYNTHROID [Concomitant]
     Indication: HYPOTHYROIDISM
  4. SINGULAIR [Concomitant]
     Dosage: 20 MG, QD
     Dates: start: 20061201
  5. FEXOFENADINE [Concomitant]
     Dosage: UNK
     Dates: start: 20070101
  6. OXYGEN [Concomitant]
     Route: 045
  7. ALBUTEROL INHALER [Concomitant]
     Dosage: UNK UNK, PRN
  8. YASMIN [Suspect]
     Indication: CONTRACEPTION
     Dosage: UNK
     Dates: start: 20020701, end: 20040901
  9. PAXIL [Concomitant]
     Dosage: 20 MG, QD
     Dates: start: 20020101

REACTIONS (16)
  - INJURY [None]
  - GENERAL PHYSICAL HEALTH DETERIORATION [None]
  - LOSS OF CONSCIOUSNESS [None]
  - FATIGUE [None]
  - EMOTIONAL DISTRESS [None]
  - PULMONARY EMBOLISM [None]
  - SYNCOPE [None]
  - PYREXIA [None]
  - PAIN [None]
  - DYSPNOEA [None]
  - ASTHENIA [None]
  - MALAISE [None]
  - SPEECH DISORDER [None]
  - FEAR OF DEATH [None]
  - ANXIETY [None]
  - HYPERSOMNIA [None]
